FAERS Safety Report 8789446 (Version 1)
Quarter: 2012Q4

REPORT INFORMATION
  Report Type: Spontaneous
  Country: US (occurrence: None)
  Receive Date: 20120910
  Receipt Date: 20120910
  Transmission Date: 20130627
  Serious: Yes (Other)
  Sender: FDA-Public Use
  Company Number: None

PATIENT
  Age: 61 Year
  Sex: Female
  Weight: 54.79 kg

DRUGS (1)
  1. DAPTOMYCIN [Suspect]
     Dosage: 330 IV
     Route: 042

REACTIONS (2)
  - Blood creatine phosphokinase increased [None]
  - Blood creatinine increased [None]
